FAERS Safety Report 24582692 (Version 1)
Quarter: 2024Q4

REPORT INFORMATION
  Report Type: Spontaneous
  Country: KR (occurrence: KR)
  Receive Date: 20241106
  Receipt Date: 20241106
  Transmission Date: 20250115
  Serious: No
  Sender: PRINSTON PHARMACEUTICAL
  Company Number: KR-PRINSTON PHARMACEUTICAL INC.-2024PRN00363

PATIENT

DRUGS (1)
  1. DIMETHYL FUMARATE [Suspect]
     Active Substance: DIMETHYL FUMARATE
     Indication: Diabetic nephropathy

REACTIONS (4)
  - Intervertebral disc protrusion [Unknown]
  - Flushing [Unknown]
  - Nausea [Unknown]
  - Off label use [Unknown]
